FAERS Safety Report 9415756 (Version 1)
Quarter: 2013Q3

REPORT INFORMATION
  Report Type: Spontaneous
  Country: BR (occurrence: BR)
  Receive Date: 20130724
  Receipt Date: 20130724
  Transmission Date: 20140515
  Serious: Yes (Hospitalization, Other)
  Sender: FDA-Public Use
  Company Number: BR-AMGEN-BRASP2013050891

PATIENT
  Age: 61 Year
  Sex: Female
  Weight: 101 kg

DRUGS (6)
  1. ENBREL [Suspect]
     Indication: RHEUMATOID ARTHRITIS
     Dosage: 25 MG, 2X/WEEK
     Route: 065
     Dates: start: 201207, end: 201306
  2. ENBREL [Suspect]
     Indication: PSORIASIS
     Dosage: UNK
     Route: 065
     Dates: start: 2013, end: 201306
  3. LOSARTAN [Concomitant]
     Indication: HYPERTENSION
     Dosage: 50 MG, 2X/DAY
     Dates: start: 1979
  4. LASIX                              /00032601/ [Concomitant]
     Indication: HYPERTENSION
     Dosage: UNSPECIFEID DOSE, 3X/WEEK
     Dates: start: 1979
  5. ROXFLAN [Concomitant]
     Indication: HYPERTENSION
     Dosage: UNSPECIFIED DOSE, 2X/DAY
     Dates: start: 1979
  6. LORAZEPAM [Concomitant]
     Dosage: UNSPECIFIED DOSE, 3X/DAY
     Dates: start: 1979

REACTIONS (9)
  - Hypoglycaemia [Unknown]
  - Diabetes mellitus [Unknown]
  - Nephrolithiasis [Unknown]
  - Blood pressure abnormal [Unknown]
  - Asthenia [Not Recovered/Not Resolved]
  - Bedridden [Not Recovered/Not Resolved]
  - Pneumonia [Not Recovered/Not Resolved]
  - Drug ineffective [Unknown]
  - Psoriasis [Unknown]
